FAERS Safety Report 6600728-9 (Version None)
Quarter: 2010Q1

REPORT INFORMATION
  Report Type: 
  Country: None (occurrence: None)
  Receive Date: 20100223
  Receipt Date: 20100223
  Transmission Date: 20100710
  Serious: Yes (Other)
  Sender: FDA-Public Use
  Company Number: None

PATIENT
  Sex: Female
  Weight: 58.9676 kg

DRUGS (1)
  1. CYMBALTA [Suspect]
     Indication: FIBROMYALGIA
     Dosage: 40MG 2 PER DAY PO
     Route: 048

REACTIONS (6)
  - BACK INJURY [None]
  - DIZZINESS [None]
  - FALL [None]
  - GAIT DISTURBANCE [None]
  - HEAD INJURY [None]
  - JOINT INJURY [None]
